FAERS Safety Report 6945818-6 (Version None)
Quarter: 2010Q3

REPORT INFORMATION
  Report Type: 
  Country: None (occurrence: None)
  Receive Date: 20100827
  Receipt Date: 20100817
  Transmission Date: 20110219
  Serious: Yes (Hospitalization)
  Sender: FDA-Public Use
  Company Number: DE-ABBOTT-10P-062-0659078-00

PATIENT
  Sex: Male

DRUGS (18)
  1. HUMIRA [Suspect]
     Indication: ANKYLOSING SPONDYLITIS
     Route: 058
     Dates: start: 20080901
  2. HUMIRA [Suspect]
     Route: 058
     Dates: start: 20100723
  3. LYRICA [Concomitant]
     Indication: PRODUCT USED FOR UNKNOWN INDICATION
  4. PRAMIPEXOLE DIHYDROCHLORIDE [Concomitant]
     Indication: PRODUCT USED FOR UNKNOWN INDICATION
  5. IRBESARTAN [Concomitant]
     Indication: PRODUCT USED FOR UNKNOWN INDICATION
     Dosage: ONCE DAILY IN MORNING
  6. MELOXICAM [Concomitant]
     Indication: PRODUCT USED FOR UNKNOWN INDICATION
     Dosage: ONCE DAILY IN MORNING
  7. ALFACALCIDOL [Concomitant]
     Indication: PRODUCT USED FOR UNKNOWN INDICATION
     Dosage: ONCE DAILY IN MORNING
  8. METHOTREXATE SODIUM [Concomitant]
     Indication: PRODUCT USED FOR UNKNOWN INDICATION
     Dates: start: 19700101
  9. PANTOPRAZOL 20 [Concomitant]
     Indication: PRODUCT USED FOR UNKNOWN INDICATION
     Dosage: ONCE DAILY IN EVENING
  10. VITAMIN B1 AND B6 [Concomitant]
     Indication: PRODUCT USED FOR UNKNOWN INDICATION
     Dosage: ONCE DAILY IN MORNING
  11. PRAMIPEXOLE [Concomitant]
     Indication: PRODUCT USED FOR UNKNOWN INDICATION
     Dosage: TWICE DAILY, NIGHT
  12. PRAMIPEXOLE [Concomitant]
     Dosage: 0.35 MG DAILY
  13. PREGABALIN [Concomitant]
     Indication: PRODUCT USED FOR UNKNOWN INDICATION
     Dosage: TWICE DAILY, MORNING AND NIGHT
  14. PROPRANOLOL [Concomitant]
     Indication: PRODUCT USED FOR UNKNOWN INDICATION
     Dosage: TWICE DAILY, MORNING AND NIGHT
  15. VITAMIN B12 SC (CYANOCOBOLAMIN) [Concomitant]
     Indication: PRODUCT USED FOR UNKNOWN INDICATION
  16. RESTEX [Concomitant]
     Indication: RESTLESS LEGS SYNDROME
     Dosage: 100 AND 100 RET
     Dates: start: 20100601
  17. GABAPENTIN [Concomitant]
     Indication: PRODUCT USED FOR UNKNOWN INDICATION
  18. CORTISON [Concomitant]
     Indication: PRODUCT USED FOR UNKNOWN INDICATION
     Route: 048
     Dates: end: 20100401

REACTIONS (19)
  - ASTHENIA [None]
  - BREATH SOUNDS ABNORMAL [None]
  - CONSTIPATION [None]
  - CUBITAL TUNNEL SYNDROME [None]
  - DIARRHOEA [None]
  - FAECAL INCONTINENCE [None]
  - JOINT RANGE OF MOTION DECREASED [None]
  - JOINT STIFFNESS [None]
  - KYPHOSIS [None]
  - LORDOSIS [None]
  - MUSCLE ATROPHY [None]
  - OEDEMA PERIPHERAL [None]
  - OSTEOARTHRITIS [None]
  - OSTEOCHONDROSIS [None]
  - PAIN IN EXTREMITY [None]
  - SENSORIMOTOR DISORDER [None]
  - SPINAL DISORDER [None]
  - TREMOR [None]
  - URINARY INCONTINENCE [None]
